FAERS Safety Report 4515241-2 (Version None)
Quarter: 2004Q4

REPORT INFORMATION
  Report Type: 
  Country: None (occurrence: None)
  Receive Date: 20041130
  Receipt Date: 20041130
  Transmission Date: 20050328
  Serious: Yes (Death)
  Sender: FDA-Public Use
  Company Number: None

PATIENT
  Age: 76 Year
  Sex: Male
  Weight: 63.5036 kg

DRUGS (1)
  1. VIOXX [Suspect]
     Indication: ARTHRITIS
     Dosage: EVERYDAY

REACTIONS (4)
  - CEREBROVASCULAR ACCIDENT [None]
  - CORONARY ARTERY DISEASE [None]
  - HYPOAESTHESIA [None]
  - LUNG DISORDER [None]
